FAERS Safety Report 21493896 (Version 1)
Quarter: 2022Q4

REPORT INFORMATION
  Report Type: Spontaneous
  Country: GB (occurrence: GB)
  Receive Date: 20221021
  Receipt Date: 20221021
  Transmission Date: 20230112
  Serious: Yes (Hospitalization, Other)
  Sender: FDA-Public Use
  Company Number: GB-JNJFOC-20221007678

PATIENT
  Age: 38 Year
  Sex: Male

DRUGS (7)
  1. CYCLOPHOSPHAMIDE [Suspect]
     Active Substance: CYCLOPHOSPHAMIDE
     Indication: POEMS syndrome
     Dosage: 6 CYCLES OF VCD
     Route: 065
     Dates: start: 201411, end: 201504
  2. CYCLOPHOSPHAMIDE [Suspect]
     Active Substance: CYCLOPHOSPHAMIDE
     Dosage: REPEAT CYCLE OF VCD
     Route: 065
  3. DARZALEX [Suspect]
     Active Substance: DARATUMUMAB
     Indication: POEMS syndrome
     Dosage: UNK
     Route: 065
  4. DEXAMETHASONE [Suspect]
     Active Substance: DEXAMETHASONE
     Indication: POEMS syndrome
     Dosage: 6 CYCLES OF VCD
     Route: 065
     Dates: start: 201411, end: 201504
  5. DEXAMETHASONE [Suspect]
     Active Substance: DEXAMETHASONE
     Dosage: REPEAT CYCLE OF VCD
     Route: 065
  6. VELCADE [Suspect]
     Active Substance: BORTEZOMIB
     Indication: POEMS syndrome
     Dosage: 6 CYCLES OF VCD
     Route: 065
     Dates: start: 201411, end: 201504
  7. VELCADE [Suspect]
     Active Substance: BORTEZOMIB
     Dosage: REPEAT CYCLE OF VCD
     Route: 065

REACTIONS (8)
  - Chronic inflammatory demyelinating polyradiculoneuropathy [Recovered/Resolved]
  - Dysphonia [Unknown]
  - Cyanosis [Unknown]
  - Weight decreased [Unknown]
  - Off label use [Unknown]
  - Sepsis [Unknown]
  - Dyspnoea [Unknown]
  - Hypotension [Unknown]
